FAERS Safety Report 25014374 (Version 3)
Quarter: 2025Q1

REPORT INFORMATION
  Report Type: Spontaneous
  Country: JP (occurrence: JP)
  Receive Date: 20250226
  Receipt Date: 20250317
  Transmission Date: 20250409
  Serious: Yes (Life-Threatening, Hospitalization, Other)
  Sender: MERCK SHARP & DOHME LLC
  Company Number: JP-009507513-2257642

PATIENT
  Age: 64 Year
  Sex: Male
  Weight: 52.5 kg

DRUGS (3)
  1. KEYTRUDA [Suspect]
     Active Substance: PEMBROLIZUMAB
     Indication: Bladder transitional cell carcinoma stage IV
     Route: 041
     Dates: start: 20250205
  2. PADCEV [Suspect]
     Active Substance: ENFORTUMAB VEDOTIN-EJFV
     Indication: Bladder transitional cell carcinoma stage IV
     Route: 041
     Dates: start: 20250205
  3. PADCEV [Suspect]
     Active Substance: ENFORTUMAB VEDOTIN-EJFV
     Indication: Bladder transitional cell carcinoma stage IV
     Route: 041
     Dates: start: 20250211

REACTIONS (7)
  - Tumour lysis syndrome [Recovered/Resolved]
  - Hypoalbuminaemia [Recovering/Resolving]
  - Cytopenia [Recovering/Resolving]
  - Cytokine release syndrome [Recovered/Resolved]
  - Feeding disorder [Unknown]
  - Malignant neoplasm progression [Unknown]
  - Renal impairment [Recovering/Resolving]

NARRATIVE: CASE EVENT DATE: 20250214
